FAERS Safety Report 5828449-0 (Version None)
Quarter: 2008Q3

REPORT INFORMATION
  Report Type: 
  Country: None (occurrence: None)
  Receive Date: 20080731
  Receipt Date: 20080721
  Transmission Date: 20090109
  Serious: Yes (Hospitalization)
  Sender: FDA-Public Use
  Company Number: US-WATSON-2008-04436

PATIENT
  Sex: Female
  Weight: 96.145 kg

DRUGS (6)
  1. FORTAMET EXTENDED RELEASE (WATSON LABORATORIES) [Suspect]
     Indication: DIABETES MELLITUS
     Dosage: 1 TABLET, QAM (PRESCRIBED TO ALSO  TAKE 1 TABLET Q AFTERNOON BUT DOES NOT DUE TO STOMACH PAIN)
     Route: 048
     Dates: start: 20080321
  2. FORTAMET EXTENDED RELEASE (WATSON LABORATORIES) [Suspect]
     Dosage: 1 TABLET, QAM (PRESCRIBED TO ALSO  TAKE 1 TABLET Q AFTERNOON BUT DOES NOT DUE TO STOMACH PAIN)
     Route: 048
     Dates: start: 20060701, end: 20080320
  3. GLIPIZIDE [Suspect]
     Indication: DIABETES MELLITUS
     Dosage: 1 TABLET, DAILY
     Route: 048
     Dates: start: 20020101
  4. LANTUS [Suspect]
     Indication: DIABETES MELLITUS
     Dosage: 80 U, QAM
     Route: 065
     Dates: start: 20040101
  5. PLAVIX [Concomitant]
     Indication: DRUG USE FOR UNKNOWN INDICATION
     Dosage: UNK
     Route: 048
  6. UNSPECIFIED  BLOOD PRESSURE MED [Concomitant]
     Indication: BLOOD PRESSURE
     Dosage: UNK
     Route: 048

REACTIONS (5)
  - ABDOMINAL PAIN UPPER [None]
  - BLOOD GLUCOSE FLUCTUATION [None]
  - BRONCHITIS CHRONIC [None]
  - CARDIAC FAILURE CONGESTIVE [None]
  - DRUG INEFFECTIVE [None]
